FAERS Safety Report 4558450-9 (Version None)
Quarter: 2005Q1

REPORT INFORMATION
  Report Type: 
  Country: None (occurrence: None)
  Receive Date: 20050121
  Receipt Date: 20040920
  Transmission Date: 20050727
  Serious: Yes (Death)
  Sender: FDA-Public Use
  Company Number: US-NOVOPROD-239424

PATIENT

DRUGS (1)
  1. NOVOSEVEN [Suspect]
     Indication: PULMONARY ALVEOLAR HAEMORRHAGE
     Dosage: UNKNOWN

REACTIONS (1)
  - CONCOMITANT DISEASE PROGRESSION [None]
